FAERS Safety Report 5398483-6 (Version None)
Quarter: 2007Q3

REPORT INFORMATION
  Report Type: 
  Country: None (occurrence: None)
  Receive Date: 20070726
  Receipt Date: 20070224
  Transmission Date: 20080115
  Serious: No
  Sender: FDA-Public Use
  Company Number: US-AMGEN-KDL212946

PATIENT
  Sex: Female
  Weight: 63.1 kg

DRUGS (7)
  1. PROCRIT [Suspect]
     Indication: ANAEMIA
     Dates: start: 20040101, end: 20060701
  2. LIPITOR [Concomitant]
  3. NEXIUM [Concomitant]
  4. ZETIA [Concomitant]
  5. PROZAC [Concomitant]
  6. WELLBUTRIN [Concomitant]
  7. ACIPHEX [Concomitant]

REACTIONS (1)
  - INJECTION SITE PAIN [None]
